FAERS Safety Report 5376816-4 (Version None)
Quarter: 2007Q3

REPORT INFORMATION
  Report Type: 
  Country: None (occurrence: None)
  Receive Date: 20070703
  Receipt Date: 20070626
  Transmission Date: 20080115
  Serious: Yes (Other)
  Sender: FDA-Public Use
  Company Number: PHEH2007US09296

PATIENT
  Age: 77 Year
  Sex: Female
  Weight: 64.852 kg

DRUGS (1)
  1. DIOVAN [Suspect]
     Indication: HYPERTENSION
     Dosage: 80 MG, QD
     Dates: start: 20070504, end: 20070626

REACTIONS (2)
  - SYNOVIAL CYST [None]
  - ULTRASOUND DOPPLER [None]
